FAERS Safety Report 4666666-6 (Version None)
Quarter: 2005Q2

REPORT INFORMATION
  Report Type: 
  Country: None (occurrence: None)
  Receive Date: 20050518
  Receipt Date: 20050505
  Transmission Date: 20051028
  Serious: Yes (Hospitalization)
  Sender: FDA-Public Use
  Company Number: HQWYE589706MAY05

PATIENT
  Age: 67 Year
  Sex: Male

DRUGS (7)
  1. CORDARONE [Suspect]
     Indication: CARDIAC DISORDER
     Dosage: 900 MG 1X PER 1 DAY, INTRAVENOUS
     Route: 042
     Dates: start: 20041223, end: 20041224
  2. ENOXAPARIN SODIUM [Concomitant]
  3. DIABEX               (METFORMIN HYDROCHLORIDE) [Concomitant]
  4. ACTRAPID HUMAN           (INSULIN HUMAN) [Concomitant]
  5. PROTAPHAN                     (INSULIN ISOPHANE, HUMAN BIOSYNTHETIC) [Concomitant]
  6. WARFARIN SODIUM [Concomitant]
  7. AMOXIL [Concomitant]

REACTIONS (3)
  - C-REACTIVE PROTEIN INCREASED [None]
  - INJECTION SITE THROMBOSIS [None]
  - RED BLOOD CELL SEDIMENTATION RATE INCREASED [None]
